FAERS Safety Report 23116052 (Version 1)
Quarter: 2023Q4

REPORT INFORMATION
  Report Type: Spontaneous
  Country: US (occurrence: US)
  Receive Date: 20231027
  Receipt Date: 20231027
  Transmission Date: 20240110
  Serious: No
  Sender: FDA-Public Use
  Company Number: US-SANOFI-01815954

PATIENT
  Age: 78 Year

DRUGS (1)
  1. DUPIXENT [Suspect]
     Active Substance: DUPILUMAB
     Indication: Asthma
     Dosage: 300 MG, QM

REACTIONS (4)
  - Taste disorder [Unknown]
  - Sensory disturbance [Unknown]
  - Off label use [Unknown]
  - Inappropriate schedule of product administration [Unknown]
